FAERS Safety Report 21179330 (Version 1)
Quarter: 2022Q3

REPORT INFORMATION
  Report Type: Spontaneous
  Country: PL (occurrence: None)
  Receive Date: 20220805
  Receipt Date: 20220805
  Transmission Date: 20221027
  Serious: Yes (Hospitalization, Other)
  Sender: FDA-Public Use
  Company Number: 2022A272917

PATIENT
  Age: 42 Year
  Sex: Male

DRUGS (9)
  1. OMEPRAZOLE [Interacting]
     Active Substance: OMEPRAZOLE
     Indication: Prophylaxis
     Route: 048
  2. OMEPRAZOLE [Interacting]
     Active Substance: OMEPRAZOLE
     Indication: Prophylaxis
     Route: 048
  3. BUPROPION [Interacting]
     Active Substance: BUPROPION
     Indication: Depression
     Route: 065
  4. CLOPIDOGREL [Interacting]
     Active Substance: CLOPIDOGREL BISULFATE
     Indication: Acute coronary syndrome
     Route: 065
  5. MEMANTINE [Interacting]
     Active Substance: MEMANTINE
     Indication: Memory impairment
     Route: 065
  6. ITRACONAZOLE [Interacting]
     Active Substance: ITRACONAZOLE
     Indication: Onychomycosis
     Dosage: 2X 200 MG
     Route: 065
  7. ASPIRIN [Concomitant]
     Active Substance: ASPIRIN
     Indication: Acute coronary syndrome
     Route: 065
  8. NEBIVOLOL [Concomitant]
     Active Substance: NEBIVOLOL
     Indication: Acute coronary syndrome
     Route: 065
  9. ZOFENOPRIL [Concomitant]
     Active Substance: ZOFENOPRIL
     Indication: Acute coronary syndrome
     Route: 065

REACTIONS (4)
  - Drug interaction [Recovered/Resolved]
  - Drug level increased [Recovered/Resolved]
  - Abdominal pain upper [Recovered/Resolved]
  - Myalgia [Recovered/Resolved]
